FAERS Safety Report 7763602-0 (Version None)
Quarter: 2011Q3

REPORT INFORMATION
  Report Type: 
  Country: None (occurrence: None)
  Receive Date: 20110920
  Receipt Date: 20110111
  Transmission Date: 20111222
  Serious: No
  Sender: FDA-Public Use
  Company Number: US-BAYER-2011-004526

PATIENT
  Age: 55 Year
  Sex: Male

DRUGS (4)
  1. ALISKIREN [Concomitant]
  2. ULTRAVIST 150 [Suspect]
     Indication: COMPUTERISED TOMOGRAM
     Dosage: 70 ML, ONCE, 2 ML/SEC
     Route: 042
     Dates: start: 20110111, end: 20110111
  3. CRESTOR [Concomitant]
     Dosage: UNK
  4. AMLODIPINE W/BENAZEPRIL [Concomitant]

REACTIONS (4)
  - SNEEZING [None]
  - EYE SWELLING [None]
  - ERYTHEMA [None]
  - NASAL CONGESTION [None]
